FAERS Safety Report 23679554 (Version 2)
Quarter: 2024Q3

REPORT INFORMATION
  Report Type: Spontaneous
  Country: US (occurrence: US)
  Receive Date: 20240327
  Receipt Date: 20240704
  Transmission Date: 20241017
  Serious: No
  Sender: TEVA
  Company Number: US-TEVA-VS-3158403

PATIENT
  Sex: Female

DRUGS (2)
  1. SPRINTEC [Suspect]
     Active Substance: ETHINYL ESTRADIOL\NORGESTIMATE
     Indication: Product used for unknown indication
     Dosage: NORGESTIMATE AND ETHINYL ESTRADIOL 0.25-0.035 MG-MG
     Route: 065
  2. TRI-LO-SPRINTEC [Suspect]
     Active Substance: ETHINYL ESTRADIOL\NORGESTIMATE
     Indication: Product used for unknown indication
     Route: 065

REACTIONS (8)
  - Haemorrhage [Unknown]
  - Product use in unapproved indication [Unknown]
  - Product dose omission issue [Unknown]
  - Malaise [Unknown]
  - Transfusion [Unknown]
  - Bacterial infection [Unknown]
  - Frustration tolerance decreased [Unknown]
  - Haemorrhage [Unknown]
